FAERS Safety Report 7213027-1 (Version None)
Quarter: 2011Q1

REPORT INFORMATION
  Report Type: 
  Country: None (occurrence: None)
  Receive Date: 20110106
  Receipt Date: 20101230
  Transmission Date: 20110831
  Serious: Yes (Hospitalization)
  Sender: FDA-Public Use
  Company Number: B0681414A

PATIENT
  Sex: Male

DRUGS (2)
  1. EFFEXOR [Concomitant]
     Dosage: 75MG PER DAY
     Route: 065
     Dates: start: 20100201
  2. ROPINIROLE HYDROCHLORIDE [Suspect]
     Indication: RESTLESS LEGS SYNDROME
     Dosage: 1MG PER DAY
     Route: 048
     Dates: start: 20100728, end: 20101023

REACTIONS (18)
  - INSOMNIA [None]
  - DISABILITY [None]
  - PARTIAL SEIZURES [None]
  - DISINHIBITION [None]
  - CONFUSIONAL STATE [None]
  - DISTURBANCE IN ATTENTION [None]
  - AMNESIA [None]
  - LOSS OF CONSCIOUSNESS [None]
  - COMPULSIVE SHOPPING [None]
  - DEPERSONALISATION [None]
  - OBSESSIVE-COMPULSIVE DISORDER [None]
  - TACHYCARDIA [None]
  - HEADACHE [None]
  - SYNCOPE [None]
  - ABNORMAL BEHAVIOUR [None]
  - MANIA [None]
  - CONDITION AGGRAVATED [None]
  - MALAISE [None]
